FAERS Safety Report 11131051 (Version 1)
Quarter: 2015Q2

REPORT INFORMATION
  Report Type: Spontaneous
  Country: IN (occurrence: IN)
  Receive Date: 20150522
  Receipt Date: 20150522
  Transmission Date: 20150821
  Serious: Yes (Death, Hospitalization)
  Sender: FDA-Public Use
  Company Number: IN-CIPLA LTD.-2015IN04053

PATIENT

DRUGS (7)
  1. CLONAZEPAM. [Suspect]
     Active Substance: CLONAZEPAM
     Indication: EPILEPSY
     Dosage: 0.25 MG, QD
  2. LAMOTRIGINE. [Suspect]
     Active Substance: LAMOTRIGINE
     Indication: EPILEPSY
     Dosage: 50 MG, QD
     Route: 048
  3. CHLOROQUINE [Suspect]
     Active Substance: CHLOROQUINE\CHLOROQUINE PHOSPHATE
     Indication: PYREXIA
     Dosage: UNK
  4. PARACETAMOL [Suspect]
     Active Substance: ACETAMINOPHEN
     Indication: PYREXIA
     Dosage: UNK
  5. PRIMAQUINE [Suspect]
     Active Substance: PRIMAQUINE PHOSPHATE
     Indication: PYREXIA
     Route: 048
  6. SODIUM VALPROATE [Suspect]
     Active Substance: VALPROATE SODIUM
     Indication: EPILEPSY
     Dosage: 300 MG, QD
  7. CEFIXIME PLUS POTASSIUM CLAVULANATE [Suspect]
     Active Substance: CEFIXIME\CLAVULANATE POTASSIUM
     Indication: PYREXIA

REACTIONS (3)
  - Respiratory failure [Fatal]
  - Stevens-Johnson syndrome [Unknown]
  - Toxic epidermal necrolysis [Unknown]
